FAERS Safety Report 7814154-8 (Version None)
Quarter: 2011Q4

REPORT INFORMATION
  Report Type: 
  Country: None (occurrence: None)
  Receive Date: 20111014
  Receipt Date: 20111007
  Transmission Date: 20120403
  Serious: Yes (Hospitalization, Other)
  Sender: FDA-Public Use
  Company Number: DE-UCBSA-043139

PATIENT
  Sex: Female
  Weight: 57 kg

DRUGS (3)
  1. FOLIO [Concomitant]
     Indication: PROPHYLAXIS OF NEURAL TUBE DEFECT
     Dosage: TOTAL DAILY DOSE: 0.4 MG
     Route: 048
     Dates: start: 20101004, end: 20101202
  2. KEPPRA [Suspect]
     Indication: EPILEPSY
     Route: 048
     Dates: start: 20101004, end: 20101202
  3. PHENOBARBITAL TAB [Suspect]
     Indication: EPILEPSY
     Dosage: TOTAL DAILY DOSE: 100 MG
     Route: 048
     Dates: start: 20101004, end: 20101202

REACTIONS (2)
  - ABORTION MISSED [None]
  - PREGNANCY [None]
